FAERS Safety Report 10571014 (Version 2)
Quarter: 2015Q1

REPORT INFORMATION
  Report Type: Spontaneous
  Country: JP (occurrence: JP)
  Receive Date: 20141107
  Receipt Date: 20150219
  Transmission Date: 20150720
  Serious: Yes (Hospitalization, Other)
  Sender: FDA-Public Use
  Company Number: JP-GLAXOSMITHKLINE-JP2014GSK017005

PATIENT
  Age: 75 Year
  Sex: Female

DRUGS (1)
  1. OMEGA-3-ACID ETHYL ESTERS. [Suspect]
     Active Substance: OMEGA-3-ACID ETHYL ESTERS
     Indication: HYPERLIPIDAEMIA
     Dosage: 2000 MG, UNK
     Route: 048

REACTIONS (5)
  - Malaise [Unknown]
  - Jaundice [Unknown]
  - Hepatitis fulminant [Unknown]
  - Suicide attempt [Unknown]
  - Depressive symptom [Unknown]
